FAERS Safety Report 9112746 (Version 1)
Quarter: 2013Q1

REPORT INFORMATION
  Report Type: Spontaneous
  Country: FR (occurrence: FR)
  Receive Date: 20130211
  Receipt Date: 20130211
  Transmission Date: 20140127
  Serious: Yes (Hospitalization, Other)
  Sender: FDA-Public Use
  Company Number: FR-ASTRAZENECA-2013SE07334

PATIENT
  Age: 55 Year
  Sex: Male

DRUGS (6)
  1. INEXIUM [Suspect]
     Route: 048
     Dates: start: 20120418
  2. VANCOMYCINE [Suspect]
     Route: 042
     Dates: start: 20120419, end: 20120504
  3. ROCEPHINE [Suspect]
     Route: 042
     Dates: start: 20120424, end: 20120504
  4. GEMTAMICINE [Suspect]
     Route: 042
     Dates: start: 20120419, end: 20120424
  5. OMNIPAQUE [Suspect]
     Indication: COMPUTERISED TOMOGRAM
     Route: 042
     Dates: start: 20120430, end: 20120430
  6. IOMERON [Suspect]
     Indication: COMPUTERISED TOMOGRAM
     Route: 042
     Dates: start: 20120422, end: 20120422

REACTIONS (2)
  - Drug reaction with eosinophilia and systemic symptoms [Recovered/Resolved]
  - Viral vasculitis [Unknown]
